FAERS Safety Report 10615608 (Version 4)
Quarter: 2015Q1

REPORT INFORMATION
  Report Type: Report from Study
  Country: US (occurrence: US)
  Receive Date: 20141201
  Receipt Date: 20150127
  Transmission Date: 20150720
  Serious: Yes (Hospitalization)
  Sender: FDA-Public Use
  Company Number: US-BAYER-2014-159204

PATIENT
  Age: 69 Year
  Sex: Female

DRUGS (3)
  1. STIVARGA [Suspect]
     Active Substance: REGORAFENIB
     Indication: COLON CANCER
     Dosage: 2 TABLETS DAILY
     Route: 048
     Dates: start: 20141104, end: 20150105
  2. STIVARGA [Suspect]
     Active Substance: REGORAFENIB
     Indication: COLON CANCER
     Dosage: 80 MG, QD
     Route: 048
     Dates: start: 20140915, end: 20141229
  3. STIVARGA [Suspect]
     Active Substance: REGORAFENIB
     Indication: COLON CANCER
     Dosage: 4 TABLETS DAILY
     Route: 048
     Dates: start: 20141006, end: 20141023

REACTIONS (3)
  - Rash generalised [None]
  - Skin exfoliation [None]
  - Dehydration [None]

NARRATIVE: CASE EVENT DATE: 201410
